FAERS Safety Report 13396471 (Version 1)
Quarter: 2017Q2

REPORT INFORMATION
  Report Type: Other
  Country: US (occurrence: US)
  Receive Date: 20170403
  Receipt Date: 20170403
  Transmission Date: 20170830
  Serious: Yes (Other)
  Sender: FDA-Public Use
  Company Number: US-NEXGEN PHARMA, INC.-1064914

PATIENT
  Age: 16 Year
  Sex: Male
  Weight: 52.27 kg

DRUGS (1)
  1. POLYETHYLENE GLYCOL 3350 FOR ORAL SOLUTION [Suspect]
     Active Substance: POLYETHYLENE GLYCOL 3350
     Indication: CONSTIPATION
     Route: 048
     Dates: start: 20170317, end: 20170331

REACTIONS (1)
  - Urticaria [None]

NARRATIVE: CASE EVENT DATE: 20170317
